FAERS Safety Report 24856006 (Version 1)
Quarter: 2025Q1

REPORT INFORMATION
  Report Type: Spontaneous
  Country: US (occurrence: None)
  Receive Date: 20250116
  Receipt Date: 20250116
  Transmission Date: 20250408
  Serious: Yes (Other)
  Sender: FDA-CTU
  Company Number: None

PATIENT
  Age: 70 Year
  Sex: Female
  Weight: 97.07 kg

DRUGS (16)
  1. ROSUVASTATIN [Suspect]
     Active Substance: ROSUVASTATIN
     Indication: Blood cholesterol increased
     Dosage: 90 TABLETS 1 X PER DAY MOUTH
     Route: 048
     Dates: start: 20240421, end: 20240605
  2. AMLODIPINE [Concomitant]
     Active Substance: AMLODIPINE BESYLATE
  3. farixigia [Concomitant]
  4. LISINOPRIL [Concomitant]
     Active Substance: LISINOPRIL
  5. ATENOLOL [Concomitant]
     Active Substance: ATENOLOL
  6. basalar [Concomitant]
  7. GLIPIZIDE [Concomitant]
     Active Substance: GLIPIZIDE
  8. bayer low dose aspirin [Concomitant]
  9. TRULICITY [Concomitant]
     Active Substance: DULAGLUTIDE
  10. SIMVASTATIN [Concomitant]
     Active Substance: SIMVASTATIN
  11. FLUTICASONE PROPIONATE [Concomitant]
     Active Substance: FLUTICASONE PROPIONATE
  12. spring valle vitimin d [Concomitant]
  13. people^s choice women^s daily with iron [Concomitant]
  14. nature^s bount (b-12) [Concomitant]
  15. spring valle (norwegian) salmon oil [Concomitant]
  16. spring valle (cold-pressed) flaxseed oil [Concomitant]

REACTIONS (2)
  - Arthralgia [None]
  - Gait inability [None]

NARRATIVE: CASE EVENT DATE: 20240515
